FAERS Safety Report 7300770-9 (Version None)
Quarter: 2011Q1

REPORT INFORMATION
  Report Type: 
  Country: None (occurrence: None)
  Receive Date: 20110218
  Receipt Date: 20110208
  Transmission Date: 20110831
  Serious: Yes (Other)
  Sender: FDA-Public Use
  Company Number: CA-NAPPMUNDI-CAN-2011-0001731

PATIENT
  Age: 57 Year
  Sex: Female

DRUGS (4)
  1. WELLBUTRIN [Suspect]
     Indication: PRODUCT USED FOR UNKNOWN INDICATION
     Route: 048
  2. OXYCONTIN [Suspect]
     Indication: PAIN
     Dosage: 20 MG, PRN
     Route: 048
     Dates: start: 20040101
  3. PRISTIQ [Suspect]
     Indication: PRODUCT USED FOR UNKNOWN INDICATION
     Route: 048
  4. NICOTINE POLACRILEX [Suspect]
     Indication: NICOTINE DEPENDENCE

REACTIONS (8)
  - NICOTINE DEPENDENCE [None]
  - CONSTIPATION [None]
  - INSOMNIA [None]
  - INAPPROPRIATE SCHEDULE OF DRUG ADMINISTRATION [None]
  - ANXIETY [None]
  - PAIN [None]
  - PSYCHOMOTOR HYPERACTIVITY [None]
  - IRRITABILITY [None]
